FAERS Safety Report 7163316-4 (Version None)
Quarter: 2010Q4

REPORT INFORMATION
  Report Type: 
  Country: None (occurrence: None)
  Receive Date: 20101215
  Receipt Date: 20100323
  Transmission Date: 20110411
  Serious: Yes (Other)
  Sender: FDA-Public Use
  Company Number: IS-PFIZER INC-2010036055

PATIENT
  Age: 50 Year
  Sex: Female

DRUGS (3)
  1. LYRICA [Suspect]
     Indication: ANXIETY
     Dosage: 150 MG, 2X/DAY
  2. LYRICA [Suspect]
     Dosage: 150 MG, 6X/DAY
  3. SEROQUEL [Concomitant]
     Indication: ANXIETY

REACTIONS (1)
  - INTENTIONAL DRUG MISUSE [None]
